FAERS Safety Report 8578148-X (Version None)
Quarter: 2012Q3

REPORT INFORMATION
  Report Type: 
  Country: None (occurrence: None)
  Receive Date: 20120808
  Receipt Date: 20120730
  Transmission Date: 20120928
  Serious: Yes (Hospitalization)
  Sender: FDA-Public Use
  Company Number: US-BAYER-2012-032576

PATIENT
  Age: 40 Year
  Sex: Female
  Weight: 71.202 kg

DRUGS (10)
  1. TRAZODONE HYDROCHLORIDE [Concomitant]
     Dosage: 50 MG, HS
     Dates: start: 20100211
  2. AUGMENTIN '500' [Concomitant]
  3. PREDNISONE [Concomitant]
  4. CITALOPRAM HYDROBROMIDE [Concomitant]
     Indication: SLEEP DISORDER THERAPY
     Dosage: 30 MG, UNK
     Dates: start: 20100211
  5. FLUTICASONE PROPIONATE [Concomitant]
     Dosage: UNK
     Dates: start: 20070101
  6. TRAZODONE HYDROCHLORIDE [Concomitant]
     Dosage: UNK UNK, HS
     Route: 048
  7. YAZ [Suspect]
     Dosage: UNK
     Dates: start: 20070101, end: 20100101
  8. ANTIBIOTICS [Concomitant]
     Dosage: UNK UNK, PRN
  9. DROSPIRENONE AND ETHINYL ESTRADIOL [Suspect]
     Dosage: UNK
     Dates: start: 20070101, end: 20100101
  10. NSAID'S [Concomitant]
     Dosage: UNK UNK, PRN

REACTIONS (8)
  - PAIN [None]
  - HYPOTHYROIDISM [None]
  - INJURY [None]
  - VOCAL CORD DISORDER [None]
  - PLEURISY [None]
  - ADENOMYOSIS [None]
  - PULMONARY EMBOLISM [None]
  - CHEST PAIN [None]
